FAERS Safety Report 9694240 (Version 2)
Quarter: 2014Q1

REPORT INFORMATION
  Report Type: Spontaneous
  Country: US (occurrence: US)
  Receive Date: 20131118
  Receipt Date: 20140103
  Transmission Date: 20141002
  Serious: No
  Sender: FDA-Public Use
  Company Number: US-PFIZER INC-2013325346

PATIENT
  Age: 73 Year
  Sex: Male
  Weight: 93.88 kg

DRUGS (4)
  1. ADVIL [Suspect]
     Indication: BACK PAIN
     Dosage: TWO TABLETS, DAILY
  2. ADVIL [Suspect]
     Indication: ARTHRALGIA
  3. ADVIL GELCAPS [Suspect]
     Indication: BACK PAIN
     Dosage: TWO CAPSULES, DAILY
     Dates: start: 201310
  4. ADVIL GELCAPS [Suspect]
     Indication: ARTHRALGIA

REACTIONS (2)
  - Fall [Unknown]
  - Drug ineffective [Unknown]
